FAERS Safety Report 6569192-2 (Version None)
Quarter: 2010Q1

REPORT INFORMATION
  Report Type: 
  Country: None (occurrence: None)
  Receive Date: 20100201
  Receipt Date: 20100201
  Transmission Date: 20100710
  Serious: Yes (Life-Threatening, Other)
  Sender: FDA-Public Use
  Company Number: None

PATIENT
  Age: 36 Year
  Sex: Female
  Weight: 90.7194 kg

DRUGS (1)
  1. THYROID TAB [Suspect]
     Indication: HYPOTHYROIDISM
     Dosage: 90MG 1 X DAILY PO
     Route: 048
     Dates: start: 19940101, end: 20091229

REACTIONS (3)
  - HYPOTHYROIDISM [None]
  - PRODUCT FORMULATION ISSUE [None]
  - PRODUCT QUALITY ISSUE [None]
